FAERS Safety Report 6015116-6 (Version None)
Quarter: 2008Q4

REPORT INFORMATION
  Report Type: 
  Country: None (occurrence: None)
  Receive Date: 20081222
  Receipt Date: 20081210
  Transmission Date: 20090506
  Serious: Yes (Hospitalization)
  Sender: FDA-Public Use
  Company Number: FR-WYE-H07232008

PATIENT
  Sex: Female

DRUGS (17)
  1. PANTOPRAZOLE SODIUM [Suspect]
     Indication: GASTROOESOPHAGEAL REFLUX DISEASE
     Dosage: UNKNOWN
     Route: 048
     Dates: start: 20081022, end: 20081027
  2. TOPALGIC [Suspect]
     Indication: PAIN
     Dosage: UNKNOWN
     Route: 042
     Dates: start: 20081022, end: 20081027
  3. SPASFON [Suspect]
     Indication: MUSCLE SPASMS
     Dosage: UNKNOWN
     Route: 042
     Dates: start: 20081022, end: 20081027
  4. PRIMPERAN TAB [Suspect]
     Indication: NAUSEA
     Dosage: 2.5 MG, FREQUENCY UNKNOWN
     Route: 042
     Dates: start: 20081022, end: 20081027
  5. VITAMIN K TAB [Suspect]
     Indication: HAEMORRHAGE PROPHYLAXIS
     Dosage: UNKNOWN
     Route: 042
     Dates: start: 20081022, end: 20081027
  6. ACUPAN [Suspect]
     Indication: PAIN
     Dosage: UNKNOWN
     Route: 042
     Dates: start: 20081024, end: 20081027
  7. DERMOVAL [Concomitant]
  8. RHINOFLUIMUCIL [Concomitant]
  9. VACCINES [Concomitant]
  10. IRBESARTAN [Concomitant]
  11. NITROGLYCERIN [Concomitant]
  12. ALPRAZOLAM [Concomitant]
  13. DIMETICONE, ACTIVATED [Concomitant]
  14. TUAMINOHEPTANE [Concomitant]
  15. BENZALKONIUM [Concomitant]
  16. METEOSPASMYL [Concomitant]
  17. LOVENOX [Suspect]
     Indication: THROMBOSIS PROPHYLAXIS
     Dosage: UNKNOWN
     Route: 058
     Dates: start: 20081022, end: 20081027

REACTIONS (11)
  - ACUTE GENERALISED EXANTHEMATOUS PUSTULOSIS [None]
  - CULTURE URINE POSITIVE [None]
  - KLEBSIELLA INFECTION [None]
  - LEUKOCYTURIA [None]
  - MORGANELLA INFECTION [None]
  - RASH ERYTHEMATOUS [None]
  - RASH MACULAR [None]
  - RASH PUSTULAR [None]
  - SEPSIS [None]
  - SKIN WARM [None]
  - STAPHYLOCOCCAL INFECTION [None]
